FAERS Safety Report 4712025-7 (Version None)
Quarter: 2005Q2

REPORT INFORMATION
  Report Type: 
  Country: None (occurrence: None)
  Receive Date: 20050629
  Receipt Date: 20050412
  Transmission Date: 20051028
  Serious: No
  Sender: FDA-Public Use
  Company Number: 05P-163-0297137-00

PATIENT
  Age: 77 Year
  Sex: Female
  Weight: 71.6683 kg

DRUGS (12)
  1. HUMIRA [Suspect]
     Indication: RHEUMATOID ARTHRITIS
     Dosage: 40 MG, 1 IN 2 WK, SUBCUTANEOUS
     Route: 058
     Dates: start: 20040101
  2. COUMADIN [Concomitant]
  3. ATENOLOL [Concomitant]
  4. LEFLUNOMIDE [Concomitant]
  5. FLUOXETINE HCL [Concomitant]
  6. PREDNISONE [Concomitant]
  7. CALCIUM GLUCONATE [Concomitant]
  8. HYDROCHLOROTHIAZIDE [Concomitant]
  9. ZOCOR [Concomitant]
  10. COZAAR [Concomitant]
  11. VITAMINS [Concomitant]
  12. LUTEIN [Concomitant]

REACTIONS (4)
  - DRUG INEFFECTIVE [None]
  - HYPOAESTHESIA [None]
  - JOINT SWELLING [None]
  - RASH [None]
